FAERS Safety Report 9929432 (Version 1)
Quarter: 2014Q1

REPORT INFORMATION
  Report Type: Spontaneous
  Country: US (occurrence: US)
  Receive Date: 20140227
  Receipt Date: 20140227
  Transmission Date: 20141002
  Serious: No
  Sender: FDA-Public Use
  Company Number: US-PFIZER INC-2014055336

PATIENT
  Age: 55 Year
  Sex: Male

DRUGS (1)
  1. BOSULIF [Suspect]
     Indication: CHRONIC MYELOID LEUKAEMIA
     Dosage: 500 MG, 1X/DAY
     Dates: start: 20130730

REACTIONS (6)
  - Arthritis [Unknown]
  - Fatigue [Unknown]
  - Fluid retention [Unknown]
  - Arthralgia [Unknown]
  - Dizziness [Unknown]
  - Oedema [Unknown]
